FAERS Safety Report 15777897 (Version 2)
Quarter: 2019Q1

REPORT INFORMATION
  Report Type: Report from Study
  Country: JP (occurrence: JP)
  Receive Date: 20181231
  Receipt Date: 20190312
  Transmission Date: 20190417
  Serious: Yes (Death)
  Sender: FDA-Public Use
  Company Number: JP-BEH-2018098098

PATIENT
  Age: 18 Year
  Sex: Female

DRUGS (1)
  1. HUMAN IMMUNOGLOBULIN (NON-COMPANY) [Suspect]
     Active Substance: HUMAN IMMUNOGLOBULIN G
     Indication: PRIMARY IMMUNODEFICIENCY SYNDROME

REACTIONS (1)
  - Drug ineffective [Fatal]
